FAERS Safety Report 7054905-6 (Version None)
Quarter: 2010Q4

REPORT INFORMATION
  Report Type: 
  Country: None (occurrence: None)
  Receive Date: 20101021
  Receipt Date: 20101012
  Transmission Date: 20110411
  Serious: No
  Sender: FDA-Public Use
  Company Number: US-BIOGENIDEC-2010BI035799

PATIENT
  Age: 43 Year
  Sex: Female

DRUGS (1)
  1. TYSABRI [Suspect]
     Indication: MULTIPLE SCLEROSIS
     Route: 042
     Dates: start: 20080129

REACTIONS (9)
  - BACK PAIN [None]
  - BALANCE DISORDER [None]
  - BLINDNESS UNILATERAL [None]
  - CHEST PAIN [None]
  - FATIGUE [None]
  - HEADACHE [None]
  - MOTOR DYSFUNCTION [None]
  - MUSCLE SPASMS [None]
  - MUSCLE SPASTICITY [None]
